FAERS Safety Report 22032864 (Version 1)
Quarter: 2023Q1

REPORT INFORMATION
  Report Type: Spontaneous
  Country: CN (occurrence: CN)
  Receive Date: 20230224
  Receipt Date: 20230224
  Transmission Date: 20230418
  Serious: Yes (Hospitalization, Other)
  Sender: FDA-Public Use
  Company Number: CN-MACLEODS PHARMACEUTICALS US LTD-MAC2023039868

PATIENT

DRUGS (12)
  1. PYRAZINAMIDE [Suspect]
     Active Substance: PYRAZINAMIDE
     Indication: Tuberculosis
     Dosage: 1 GRAM, QD
     Route: 065
  2. LINEZOLID [Suspect]
     Active Substance: LINEZOLID
     Indication: Tuberculosis
     Dosage: 0.6 GRAM, QD
     Route: 065
  3. LINEZOLID [Suspect]
     Active Substance: LINEZOLID
     Indication: Disseminated tuberculosis
  4. LINEZOLID [Suspect]
     Active Substance: LINEZOLID
     Indication: Pulmonary tuberculosis
  5. ISONIAZID [Suspect]
     Active Substance: ISONIAZID
     Indication: Tuberculosis
     Dosage: 0.3 GRAM, QD
     Route: 065
  6. ISONIAZID [Suspect]
     Active Substance: ISONIAZID
     Indication: Disseminated tuberculosis
     Dosage: 0.6 GRAM, QD
     Route: 065
  7. ISONIAZID [Suspect]
     Active Substance: ISONIAZID
     Indication: Pulmonary tuberculosis
  8. RIFAMPIN [Suspect]
     Active Substance: RIFAMPIN
     Indication: Tuberculosis
     Dosage: 0.45 GRAM, QD
     Route: 065
  9. ETHAMBUTOL [Suspect]
     Active Substance: ETHAMBUTOL HYDROCHLORIDE
     Indication: Tuberculosis
     Dosage: 0.75 GRAM, QD
     Route: 065
  10. PREDNISONE ACETATE [Concomitant]
     Active Substance: PREDNISONE ACETATE
     Indication: Pulmonary tuberculosis
     Dosage: 30 MILLIGRAM, QD
     Route: 065
  11. PREDNISONE ACETATE [Concomitant]
     Active Substance: PREDNISONE ACETATE
     Indication: Disseminated tuberculosis
  12. Prothioconazole [Concomitant]
     Indication: Pulmonary tuberculosis
     Dosage: 0.6 GRAM, QD
     Route: 065

REACTIONS (5)
  - Tuberculosis [Recovered/Resolved]
  - Meningitis tuberculous [Recovered/Resolved]
  - Visual acuity reduced [Recovered/Resolved]
  - Neuropathy peripheral [Recovering/Resolving]
  - Arthralgia [Unknown]
